APPROVED DRUG PRODUCT: MYCOSTATIN
Active Ingredient: NYSTATIN
Strength: 100,000 UNITS/ML
Dosage Form/Route: SUSPENSION;ORAL
Application: A061533 | Product #001
Applicant: DELCOR ASSET CORP
Approved: Approved Prior to Jan 1, 1982 | RLD: No | RS: No | Type: DISCN